FAERS Safety Report 25946714 (Version 3)
Quarter: 2025Q4

REPORT INFORMATION
  Report Type: Spontaneous
  Country: US (occurrence: US)
  Receive Date: 20251022
  Receipt Date: 20251128
  Transmission Date: 20260117
  Serious: No
  Sender: TOLMAR
  Company Number: US-Tolmar-TLM-2025-07659

PATIENT

DRUGS (2)
  1. ELIGARD [Suspect]
     Active Substance: LEUPROLIDE ACETATE
     Indication: Prostate cancer
     Dosage: SN: 5936347209146?GTIN: 00362935756804?EXPIRATION DATE: AUG-2026; AUG-2026; 31-AUG-2026
  2. DEVICE [Suspect]
     Active Substance: DEVICE
     Indication: Prostate cancer
     Dosage: BOX: 15405CUS/ 8-26?SN: 5936347209146?GTIN: 00362935756804?EXPIRATION DATE: AUG-2026; AUG-2026; 31-A

REACTIONS (2)
  - Intercepted product preparation error [Unknown]
  - Product quality issue [Unknown]
